FAERS Safety Report 7437914-4 (Version None)
Quarter: 2011Q2

REPORT INFORMATION
  Report Type: 
  Country: None (occurrence: None)
  Receive Date: 20110426
  Receipt Date: 20110419
  Transmission Date: 20111010
  Serious: Yes (Hospitalization)
  Sender: FDA-Public Use
  Company Number: B0715205A

PATIENT
  Age: 24 Year
  Sex: Male

DRUGS (3)
  1. RISPERIDONE [Concomitant]
     Route: 065
  2. LAMOTRIGINE [Suspect]
     Route: 065
  3. LITHIUM [Concomitant]
     Route: 065

REACTIONS (4)
  - ANGER [None]
  - MANIA [None]
  - IRRITABILITY [None]
  - PSYCHOTIC DISORDER [None]
